FAERS Safety Report 5300041-6 (Version None)
Quarter: 2007Q2

REPORT INFORMATION
  Report Type: 
  Country: None (occurrence: None)
  Receive Date: 20070410
  Receipt Date: 20070330
  Transmission Date: 20071010
  Serious: Yes (Hospitalization)
  Sender: FDA-Public Use
  Company Number: B0461403A

PATIENT
  Age: 63 Year
  Sex: Female

DRUGS (1)
  1. VALTREX [Suspect]
     Indication: HERPES ZOSTER
     Dosage: 1 GRAM (S) / THREE TIMES PER DAY / ORAL
     Route: 048
     Dates: start: 20070305, end: 20070307

REACTIONS (2)
  - DELIRIUM [None]
  - HAEMODIALYSIS [None]
